FAERS Safety Report 7565001-3 (Version None)
Quarter: 2011Q2

REPORT INFORMATION
  Report Type: 
  Country: None (occurrence: None)
  Receive Date: 20110622
  Receipt Date: 20110322
  Transmission Date: 20111010
  Serious: No
  Sender: FDA-Public Use
  Company Number: US-MYLANLABS-2011S1005943

PATIENT
  Sex: Male

DRUGS (2)
  1. CYCLOBENZAPRINE [Suspect]
     Route: 048
  2. CLOZAPINE [Suspect]
     Route: 048

REACTIONS (2)
  - ABNORMAL BEHAVIOUR [None]
  - PRODUCT COMMINGLING [None]
